FAERS Safety Report 11384215 (Version 1)
Quarter: 2015Q3

REPORT INFORMATION
  Report Type: Spontaneous
  Country: US (occurrence: US)
  Receive Date: 20150811
  Receipt Date: 20150811
  Transmission Date: 20151125
  Serious: No
  Sender: FDA-Public Use
  Company Number: US-ELI_LILLY_AND_COMPANY-US200801000245

PATIENT
  Age: 61 Year
  Sex: Male

DRUGS (2)
  1. WELLBUTRIN [Concomitant]
     Active Substance: BUPROPION HYDROCHLORIDE
  2. CIALIS [Suspect]
     Active Substance: TADALAFIL
     Dosage: 10 MG, UNK
     Dates: start: 200606

REACTIONS (5)
  - Abdominal distension [Unknown]
  - Vomiting [Unknown]
  - Gastrointestinal disorder [Unknown]
  - Nasal congestion [Unknown]
  - Coeliac disease [Unknown]

NARRATIVE: CASE EVENT DATE: 200704
